FAERS Safety Report 22339401 (Version 1)
Quarter: 2023Q2

REPORT INFORMATION
  Report Type: Spontaneous
  Country: CN (occurrence: CN)
  Receive Date: 20230518
  Receipt Date: 20230518
  Transmission Date: 20230722
  Serious: Yes (Hospitalization, Other)
  Sender: FDA-Public Use
  Company Number: CN-PFIZER INC-PV202300085932

PATIENT
  Age: 66 Year
  Sex: Male
  Weight: 82 kg

DRUGS (1)
  1. DACOMITINIB [Suspect]
     Active Substance: DACOMITINIB
     Indication: Targeted cancer therapy
     Dosage: 30 MG, 1X/DAY
     Route: 048
     Dates: start: 20230406, end: 20230511

REACTIONS (2)
  - Rash erythematous [Not Recovered/Not Resolved]
  - Skin hypertrophy [Not Recovered/Not Resolved]

NARRATIVE: CASE EVENT DATE: 20230511
